FAERS Safety Report 10567438 (Version 2)
Quarter: 2014Q4

REPORT INFORMATION
  Report Type: Spontaneous
  Country: PH (occurrence: PH)
  Receive Date: 20141106
  Receipt Date: 20141219
  Transmission Date: 20150529
  Serious: Yes (Hospitalization)
  Sender: FDA-Public Use
  Company Number: PH-AMGEN-PHLSP2014085570

PATIENT
  Age: 45 Year
  Sex: Female

DRUGS (5)
  1. CELECOXIB. [Concomitant]
     Active Substance: CELECOXIB
     Indication: PAIN
     Dosage: 100 MG, AS NEEDED
  2. URSODEOXYCHOLIC ACID [Concomitant]
     Active Substance: URSODIOL
     Indication: TRANSAMINASES INCREASED
     Dosage: UNK, 2X/DAY
     Dates: end: 20141031
  3. ENBREL [Suspect]
     Active Substance: ETANERCEPT
     Indication: PSORIATIC ARTHROPATHY
     Dosage: 25 MG, WEEKLY
     Route: 058
     Dates: start: 20141017, end: 20141031
  4. OMEPRAZOLE. [Concomitant]
     Active Substance: OMEPRAZOLE
     Indication: PROPHYLAXIS AGAINST GASTROINTESTINAL ULCER
     Dosage: 40 MG, 1X/DAY
     Dates: end: 20141031
  5. CELECOXIB. [Concomitant]
     Active Substance: CELECOXIB
     Indication: JOINT SWELLING
     Dosage: UNK

REACTIONS (2)
  - Stevens-Johnson syndrome [Recovered/Resolved]
  - Drug hypersensitivity [Recovered/Resolved]
